FAERS Safety Report 5777871-X (Version None)
Quarter: 2008Q2

REPORT INFORMATION
  Report Type: 
  Country: None (occurrence: None)
  Receive Date: 20080618
  Receipt Date: 20080605
  Transmission Date: 20081010
  Serious: Yes (Hospitalization, Other)
  Sender: FDA-Public Use
  Company Number: DE-GENENTECH-259998

PATIENT
  Sex: Female

DRUGS (3)
  1. AVASTIN [Suspect]
     Indication: CHOROIDAL NEOVASCULARISATION
     Dosage: 0.1 ML, UNK
     Route: 031
     Dates: start: 20080108
  2. AVASTIN [Suspect]
     Indication: MACULAR DEGENERATION
     Dosage: UNK MG/ML, UNK
     Route: 031
     Dates: start: 20080218
  3. AVASTIN [Suspect]
     Dosage: 0.002 G, UNK
     Route: 031
     Dates: start: 20080317

REACTIONS (2)
  - TRANSMISSION OF AN INFECTIOUS AGENT VIA A MEDICINAL PRODUCT [None]
  - UVEITIS [None]
